FAERS Safety Report 22349938 (Version 1)
Quarter: 2023Q2

REPORT INFORMATION
  Report Type: Spontaneous
  Country: US (occurrence: None)
  Receive Date: 20230519
  Receipt Date: 20230519
  Transmission Date: 20230721
  Serious: Yes (Disabling, Other)
  Sender: FDA-Public Use
  Company Number: None

PATIENT
  Sex: Male
  Weight: 30.6 kg

DRUGS (6)
  1. MONTELUKAST [Suspect]
     Active Substance: MONTELUKAST SODIUM
     Indication: Asthma
     Dates: start: 20181015, end: 20230515
  2. Concerta ER 18 mcg QD [Concomitant]
  3. Methylphenidate 5 mg QD [Concomitant]
  4. Guanfacine 2 mg QD Flovent 44 mcg 2 puffs bid [Concomitant]
  5. Albuterol hfa PRN [Concomitant]
  6. Fluoxetine 20 mg QD [Concomitant]

REACTIONS (3)
  - Abnormal behaviour [None]
  - Mood altered [None]
  - Unevaluable event [None]
